FAERS Safety Report 5070659-7 (Version None)
Quarter: 2006Q3

REPORT INFORMATION
  Report Type: 
  Country: None (occurrence: None)
  Receive Date: 20060804
  Receipt Date: 20050829
  Transmission Date: 20061208
  Serious: No
  Sender: FDA-Public Use
  Company Number: US-GLAXOSMITHKLINE-A0572141A

PATIENT
  Age: 39 Year
  Sex: Female

DRUGS (2)
  1. NICORETTE [Suspect]
  2. TARGET NTS 14MG [Suspect]
     Dates: start: 20050828, end: 20050829

REACTIONS (7)
  - DIZZINESS [None]
  - EYELID OEDEMA [None]
  - GINGIVAL ULCERATION [None]
  - MALAISE [None]
  - SALIVARY GLAND ENLARGEMENT [None]
  - SKIN LESION [None]
  - SWELLING FACE [None]
